FAERS Safety Report 10741719 (Version 3)
Quarter: 2015Q1

REPORT INFORMATION
  Report Type: Report from Study
  Country: EC (occurrence: EC)
  Receive Date: 20150127
  Receipt Date: 20150224
  Transmission Date: 20150721
  Serious: Yes (Death)
  Sender: FDA-Public Use
  Company Number: EC-ABBVIE-15P-047-1337281-00

PATIENT
  Sex: Male

DRUGS (1)
  1. ZEMPLAR [Suspect]
     Active Substance: PARICALCITOL
     Indication: HYPERPARATHYROIDISM SECONDARY
     Route: 050
     Dates: start: 201011

REACTIONS (4)
  - Hypertension [Fatal]
  - Cerebrovascular accident [Fatal]
  - Diabetes mellitus [Fatal]
  - Renal failure [Fatal]
